FAERS Safety Report 26104668 (Version 1)
Quarter: 2025Q4

REPORT INFORMATION
  Report Type: Spontaneous
  Country: CA (occurrence: CA)
  Receive Date: 20251130
  Receipt Date: 20251130
  Transmission Date: 20260117
  Serious: Yes (Other)
  Sender: JOHNSON AND JOHNSON
  Company Number: CA-JNJFOC-20251176030

PATIENT
  Age: 35 Year
  Sex: Female

DRUGS (1)
  1. USTEKINUMAB [Suspect]
     Active Substance: USTEKINUMAB
     Indication: Crohn^s disease
     Route: 058

REACTIONS (6)
  - Cystitis noninfective [Unknown]
  - Fistula [Unknown]
  - Suprapubic pain [Unknown]
  - Arthralgia [Unknown]
  - Diarrhoea [Unknown]
  - Intentional product use issue [Unknown]
